FAERS Safety Report 20308443 (Version 2)
Quarter: 2022Q1

REPORT INFORMATION
  Report Type: Spontaneous
  Country: US (occurrence: US)
  Receive Date: 20220107
  Receipt Date: 20220120
  Transmission Date: 20220423
  Serious: No
  Sender: FDA-Public Use
  Company Number: US-LUPIN PHARMACEUTICALS INC.-2021-26238

PATIENT
  Sex: Male

DRUGS (1)
  1. ALBUTEROL SULFATE [Suspect]
     Active Substance: ALBUTEROL SULFATE
     Indication: Obstructive airways disorder
     Dosage: 2 DOSAGE FORM, BID, 2 PUFFS TWICE DAILY
     Dates: start: 2021

REACTIONS (2)
  - Device delivery system issue [Unknown]
  - No adverse event [Unknown]
